FAERS Safety Report 24695604 (Version 1)
Quarter: 2024Q4

REPORT INFORMATION
  Report Type: Spontaneous
  Country: US (occurrence: US)
  Receive Date: 20241204
  Receipt Date: 20241204
  Transmission Date: 20250114
  Serious: Yes (Hospitalization, Other)
  Sender: ALEXION PHARMACEUTICALS
  Company Number: US-AstraZeneca-CH-00755359AP

PATIENT
  Age: 78 Year

DRUGS (2)
  1. BYDUREON BCISE [Suspect]
     Active Substance: EXENATIDE
     Dosage: 2 MILLIGRAM
  2. BYDUREON BCISE [Suspect]
     Active Substance: EXENATIDE
     Dosage: 2 MILLIGRAM

REACTIONS (9)
  - Injection site injury [Unknown]
  - Incorrect dose administered [Unknown]
  - Bladder cancer [Unknown]
  - Malignant neoplasm progression [Unknown]
  - Mass [Unknown]
  - Squamous cell carcinoma of skin [Unknown]
  - Bladder cancer recurrent [Unknown]
  - Hepatic cancer [Unknown]
  - Malignant neoplasm of spinal cord [Unknown]
